FAERS Safety Report 9923706 (Version 1)
Quarter: 2014Q1

REPORT INFORMATION
  Report Type: Spontaneous
  Country: US (occurrence: US)
  Receive Date: 20140225
  Receipt Date: 20140225
  Transmission Date: 20141002
  Serious: No
  Sender: FDA-Public Use
  Company Number: US-AMGEN-USASP2014000094

PATIENT
  Age: 69 Year
  Sex: Female
  Weight: 63.49 kg

DRUGS (7)
  1. ENBREL [Suspect]
     Indication: RHEUMATOID ARTHRITIS
     Dosage: 50 MG, QWK
     Route: 058
     Dates: start: 2009
  2. ZOCOR [Concomitant]
     Dosage: UNK
  3. PEPCID                             /00706001/ [Concomitant]
     Dosage: UNK
  4. VALACYCLOVIR [Concomitant]
     Dosage: UNK UNK, AS NECESSARY
  5. FISH OIL [Concomitant]
     Dosage: UNK
  6. FOLIC ACID [Concomitant]
     Dosage: UNK
  7. METHOTREXATE [Concomitant]
     Dosage: UNK

REACTIONS (5)
  - Blood cholesterol abnormal [Unknown]
  - Blood triglycerides abnormal [Unknown]
  - High density lipoprotein abnormal [Unknown]
  - Herpes zoster [Recovered/Resolved]
  - Oral herpes [Not Recovered/Not Resolved]
